FAERS Safety Report 14813124 (Version 1)
Quarter: 2018Q2

REPORT INFORMATION
  Report Type: Spontaneous
  Country: US (occurrence: US)
  Receive Date: 20180426
  Receipt Date: 20180426
  Transmission Date: 20180711
  Serious: No
  Sender: FDA-Public Use
  Company Number: US-MALLINCKRODT-T201705330

PATIENT
  Sex: Male
  Weight: 74 kg

DRUGS (1)
  1. DEXTROAMPHETAMINE SULFATE. [Suspect]
     Active Substance: DEXTROAMPHETAMINE SULFATE
     Indication: ATTENTION DEFICIT/HYPERACTIVITY DISORDER
     Dosage: 10 MG, TWICE A DAY
     Route: 048
     Dates: start: 20171208, end: 20171218

REACTIONS (9)
  - Depression [Unknown]
  - Disturbance in attention [Unknown]
  - Fatigue [Unknown]
  - Drug ineffective [Unknown]
  - Irritability [Unknown]
  - Decreased appetite [Unknown]
  - Condition aggravated [Unknown]
  - Somnolence [Unknown]
  - Attention deficit/hyperactivity disorder [Unknown]
